FAERS Safety Report 7171036-5 (Version None)
Quarter: 2010Q4

REPORT INFORMATION
  Report Type: 
  Country: None (occurrence: None)
  Receive Date: 20101217
  Receipt Date: 20101207
  Transmission Date: 20110411
  Serious: Yes (Death, Other)
  Sender: FDA-Public Use
  Company Number: JP-AMGEN-JPNCT2010005257

PATIENT

DRUGS (6)
  1. PANITUMUMAB [Suspect]
     Indication: COLORECTAL CANCER
     Dosage: 6 MG/KG, Q2WK
     Route: 041
     Dates: start: 20100811, end: 20100825
  2. ANTIHISTAMINES [Concomitant]
     Indication: PROPHYLAXIS
     Route: 065
  3. CORTICOSTEROIDS [Concomitant]
     Indication: PROPHYLAXIS
     Route: 065
  4. IRINOTECAN HYDROCHLORIDE [Concomitant]
     Indication: COLORECTAL CANCER
     Route: 041
     Dates: start: 20100811, end: 20100825
  5. ALOXI [Concomitant]
     Route: 042
  6. DECADRON [Concomitant]
     Route: 042

REACTIONS (3)
  - COLORECTAL CANCER [None]
  - DIARRHOEA [None]
  - PERITONITIS [None]
